FAERS Safety Report 13489816 (Version 2)
Quarter: 2017Q3

REPORT INFORMATION
  Report Type: Spontaneous
  Country: HU (occurrence: HU)
  Receive Date: 20170426
  Receipt Date: 20170901
  Transmission Date: 20171127
  Serious: Yes (Other)
  Sender: FDA-Public Use
  Company Number: HU-IMPAX LABORATORIES, INC-2017-IPXL-01041

PATIENT
  Age: 27 Year
  Sex: Female
  Weight: 97 kg

DRUGS (7)
  1. LANTUS [Suspect]
     Active Substance: INSULIN GLARGINE
     Dosage: 60 E, UNK
     Route: 065
  2. NOVORAPID [Suspect]
     Active Substance: INSULIN ASPART
     Indication: TYPE 2 DIABETES MELLITUS
     Dosage: 18-18-18 E, UNK
     Route: 065
  3. MYO-INOSITOL [Suspect]
     Active Substance: INOSITOL
     Indication: HYPOGLYCAEMIA
     Dosage: 2 G, UNK
     Route: 065
     Dates: start: 201403
  4. INOFOLIC [Suspect]
     Active Substance: FOLIC ACID\INOSITOL
     Indication: SUPPLEMENTATION THERAPY
     Dosage: 0.2 MG, UNK
     Route: 065
  5. LANTUS [Suspect]
     Active Substance: INSULIN GLARGINE
     Indication: TYPE 2 DIABETES MELLITUS
     Dosage: 54 E, UNK
     Route: 065
  6. NOVORAPID [Suspect]
     Active Substance: INSULIN ASPART
     Dosage: 15-15-15 E, UNK
     Route: 065
  7. METFORMIN HYDROCHLORIDE ER [Suspect]
     Active Substance: METFORMIN HYDROCHLORIDE
     Indication: TYPE 2 DIABETES MELLITUS
     Dosage: 1000 MG, UNK
     Route: 065

REACTIONS (7)
  - Exposure during pregnancy [Unknown]
  - Premature rupture of membranes [Unknown]
  - Diabetes mellitus inadequate control [Unknown]
  - Abortion missed [Unknown]
  - Hypoglycaemia [Recovering/Resolving]
  - Abortion induced [Unknown]
  - Premature baby [Unknown]
